FAERS Safety Report 8399987 (Version 2)
Quarter: 2015Q2

REPORT INFORMATION
  Report Type: Spontaneous
  Country: US (occurrence: US)
  Receive Date: 20120210
  Receipt Date: 20150429
  Transmission Date: 20150821
  Serious: Yes (Other)
  Sender: FDA-Public Use
  Company Number: US-ROCHE-793818

PATIENT
  Age: 23 Year
  Sex: Female
  Weight: 63.56 kg

DRUGS (1)
  1. ACCUTANE [Suspect]
     Active Substance: ISOTRETINOIN
     Indication: ACNE
     Route: 065
     Dates: start: 20040610, end: 20050131

REACTIONS (12)
  - Crohn^s disease [Unknown]
  - Irritable bowel syndrome [Unknown]
  - Cheilitis [Unknown]
  - Lip dry [Unknown]
  - Chapped lips [Unknown]
  - Colitis ulcerative [Unknown]
  - Depression [Unknown]
  - Epistaxis [Unknown]
  - Dry skin [Unknown]
  - Dry eye [Unknown]
  - Inflammatory bowel disease [Unknown]
  - Nasal dryness [Unknown]

NARRATIVE: CASE EVENT DATE: 20040701
